FAERS Safety Report 13750258 (Version 3)
Quarter: 2018Q4

REPORT INFORMATION
  Report Type: Spontaneous
  Country: JP (occurrence: JP)
  Receive Date: 20170713
  Receipt Date: 20181012
  Transmission Date: 20190204
  Serious: Yes (Hospitalization, Other)
  Sender: FDA-Public Use
  Company Number: JP-BAUSCH-BL-2017-021208

PATIENT
  Age: 54 Year
  Sex: Female

DRUGS (1)
  1. PREDNISOLONE. [Suspect]
     Active Substance: PREDNISOLONE
     Indication: ANGIOEDEMA
     Dosage: ABOUT 7 TIMES A MONTH AS NECESSARY
     Route: 065

REACTIONS (6)
  - Eye disorder [Recovering/Resolving]
  - Retroperitoneal fibrosis [Recovering/Resolving]
  - Mikulicz^s disease [Recovering/Resolving]
  - Liver disorder [Recovering/Resolving]
  - Symptom masked [Recovering/Resolving]
  - Immunoglobulin G4 related disease [Recovering/Resolving]
